FAERS Safety Report 11843733 (Version 2)
Quarter: 2015Q4

REPORT INFORMATION
  Report Type: Spontaneous
  Country: US (occurrence: US)
  Receive Date: 20151217
  Receipt Date: 20151217
  Transmission Date: 20160305
  Serious: No
  Sender: FDA-Public Use
  Company Number: US-HOSPIRA-2784311

PATIENT
  Age: 14 Year
  Sex: Male
  Weight: 54.4 kg

DRUGS (4)
  1. PSEUDOEPHEDRINE [Concomitant]
     Active Substance: PSEUDOEPHEDRINE
     Indication: UPPER RESPIRATORY TRACT INFECTION
     Dosage: MULTIPLE DOSE, MULTIPLE FREQUENCY
     Route: 048
  2. ACETYLCYSTEINE. [Suspect]
     Active Substance: ACETYLCYSTEINE
     Indication: OVERDOSE
     Dosage: X1
     Route: 041
     Dates: start: 20150226, end: 20150226
  3. PHENYLEPHRINE [Concomitant]
     Active Substance: PHENYLEPHRINE\PHENYLEPHRINE HYDROCHLORIDE
     Indication: UPPER RESPIRATORY TRACT INFECTION
     Dosage: MULTIPLE DOSE, MULTIPLE FREQUENCY
     Route: 048
  4. APAP [Concomitant]
     Active Substance: ACETAMINOPHEN
     Indication: UPPER RESPIRATORY TRACT INFECTION
     Dosage: MULTIPLE DOSE, MULTIPLE FREQUENCY
     Route: 048

REACTIONS (3)
  - Incorrect route of drug administration [Recovered/Resolved]
  - Product label issue [Recovered/Resolved]
  - No adverse event [None]

NARRATIVE: CASE EVENT DATE: 20150226
